FAERS Safety Report 5702223-8 (Version None)
Quarter: 2008Q2

REPORT INFORMATION
  Report Type: 
  Country: None (occurrence: None)
  Receive Date: 20080411
  Receipt Date: 20080130
  Transmission Date: 20081010
  Serious: No
  Sender: FDA-Public Use
  Company Number: US-ABBOTT-08P-163-0436026-00

PATIENT
  Sex: Female
  Weight: 81.72 kg

DRUGS (9)
  1. DEPAKOTE [Suspect]
     Indication: CONVULSION
     Route: 048
     Dates: start: 20070101
  2. DEPAKOTE [Suspect]
     Indication: AFFECTIVE DISORDER
  3. QUETIAPINE FUMARATE [Suspect]
     Indication: AFFECTIVE DISORDER
     Route: 048
     Dates: start: 20071001
  4. LORAZEPAM [Concomitant]
     Indication: ANXIETY
     Route: 048
     Dates: start: 20060101
  5. LORAZEPAM [Concomitant]
     Indication: AGITATION
  6. M.V.I. [Concomitant]
     Indication: VITAMIN SUPPLEMENTATION
     Route: 048
  7. POLY FLORATAB [Concomitant]
     Indication: SUPPLEMENTATION THERAPY
     Route: 048
  8. SENNA ALEXANDRINA [Concomitant]
     Indication: CONSTIPATION
     Route: 048
     Dates: start: 20061101
  9. YAS [Concomitant]
     Indication: CONTRACEPTION
     Route: 048

REACTIONS (1)
  - WEIGHT INCREASED [None]
